FAERS Safety Report 23820252 (Version 3)
Quarter: 2024Q2

REPORT INFORMATION
  Report Type: Spontaneous
  Country: US (occurrence: US)
  Receive Date: 20240506
  Receipt Date: 20240520
  Transmission Date: 20240716
  Serious: No
  Sender: FDA-Public Use
  Company Number: US-PFIZER INC-202400068865

PATIENT
  Age: 11 Year
  Sex: Female

DRUGS (3)
  1. GENOTROPIN [Suspect]
     Active Substance: SOMATROPIN
     Indication: Short stature
     Dosage: 1 MG, DAILY
  2. NGENLA [Suspect]
     Active Substance: SOMATROGON-GHLA
     Dosage: 1.1 MG, WEEKLY
  3. NGENLA [Suspect]
     Active Substance: SOMATROGON-GHLA
     Dosage: 1 MG, WEEKLY

REACTIONS (2)
  - Product prescribing error [Unknown]
  - Liquid product physical issue [Unknown]
